FAERS Safety Report 6007091-5 (Version None)
Quarter: 2008Q4

REPORT INFORMATION
  Report Type: 
  Country: None (occurrence: None)
  Receive Date: 20081217
  Receipt Date: 20080109
  Transmission Date: 20090506
  Serious: No
  Sender: FDA-Public Use
  Company Number: US-ASTRAZENECA-2008UW00639

PATIENT
  Age: 67 Year
  Sex: Female

DRUGS (7)
  1. CRESTOR [Suspect]
     Indication: BLOOD CHOLESTEROL INCREASED
     Dosage: 5 MG DAILY FOR A YEAR
     Route: 048
  2. CRESTOR [Suspect]
     Dosage: THREE MONTH AGO DOSE WAS CHANGED FROM 10 TO 5 MG DAILY
     Route: 048
  3. CRESTOR [Suspect]
     Dosage: THE DOSE WAS CHANGED BACK TO 5 MG DAILY AGAIN
     Route: 048
  4. INSULIN METFORMIN [Concomitant]
  5. ALLEGRA [Concomitant]
  6. LEVOXYL [Concomitant]
  7. PLAVIX [Concomitant]

REACTIONS (2)
  - MUSCULOSKELETAL PAIN [None]
  - PAIN IN EXTREMITY [None]
